FAERS Safety Report 9406084 (Version 1)
Quarter: 2013Q3

REPORT INFORMATION
  Report Type: Spontaneous
  Country: FR (occurrence: FR)
  Receive Date: 20130717
  Receipt Date: 20130717
  Transmission Date: 20140515
  Serious: Yes (Hospitalization)
  Sender: FDA-Public Use
  Company Number: FR-009507513-1307FRA004306

PATIENT
  Age: 31 Year
  Sex: Female

DRUGS (3)
  1. GONADOTROPHINE CHORIONIQUE ENDO 5000 UI/1ML [Suspect]
     Indication: IN VITRO FERTILISATION
     Dosage: 1 DF, ONCE
     Route: 030
     Dates: start: 20120303, end: 20120303
  2. GONAL-F [Suspect]
     Indication: IN VITRO FERTILISATION
     Dosage: UNK
     Route: 058
     Dates: start: 20120223, end: 20120302
  3. DECAPEPTYL (TRIPTORELIN ACETATE) [Suspect]
     Indication: IN VITRO FERTILISATION
     Dosage: 0.5 DF, QD
     Route: 058
     Dates: start: 20120208, end: 20120302

REACTIONS (2)
  - Ovarian hyperstimulation syndrome [Recovered/Resolved]
  - Pelvic fluid collection [Recovered/Resolved]
